FAERS Safety Report 9023542 (Version 1)
Quarter: 2013Q1

REPORT INFORMATION
  Report Type: Spontaneous
  Country: MX (occurrence: MX)
  Receive Date: 20130121
  Receipt Date: 20130121
  Transmission Date: 20140127
  Serious: Yes (Death, Other)
  Sender: FDA-Public Use
  Company Number: PHHY2012MX012606

PATIENT
  Sex: Female

DRUGS (3)
  1. RASILEZ HCT [Suspect]
     Indication: HYPERTENSION
     Dosage: 1 DF (300/12.5MG), PER DAY
     Route: 048
     Dates: start: 2010, end: 201211
  2. INSULIN [Concomitant]
     Dosage: 5 MG, UNK
  3. KETOSTERIL [Concomitant]
     Dosage: 2 UKN, DAILY

REACTIONS (1)
  - Renal failure [Fatal]
